FAERS Safety Report 4457614-2 (Version None)
Quarter: 2004Q3

REPORT INFORMATION
  Report Type: 
  Country: None (occurrence: None)
  Receive Date: 20040922
  Receipt Date: 20040914
  Transmission Date: 20050211
  Serious: Yes (Other)
  Sender: FDA-Public Use
  Company Number: STA-AE-04-MTX-408

PATIENT
  Age: 33 Year
  Sex: Male

DRUGS (5)
  1. METHOTREXATE [Suspect]
     Indication: PSORIATIC ARTHROPATHY
     Dosage: 15 MG 1X PER 1 WK, ORAL
     Route: 048
     Dates: start: 20020101
  2. KETOCONAZOLE [Concomitant]
  3. CETIRIZINE HCL [Concomitant]
  4. ACETAMINOPHEN [Concomitant]
  5. CO-CODAMOL (CODEINE PHOSPHATE/PARACETAMOL) [Concomitant]

REACTIONS (2)
  - GAMMA-GLUTAMYLTRANSFERASE INCREASED [None]
  - THROMBOCYTOPENIA [None]
